FAERS Safety Report 22085910 (Version 1)
Quarter: 2023Q1

REPORT INFORMATION
  Report Type: Spontaneous
  Country: JP (occurrence: JP)
  Receive Date: 20230310
  Receipt Date: 20230310
  Transmission Date: 20230418
  Serious: Yes (Death, Other)
  Sender: FDA-Public Use
  Company Number: JP-Eisai-202215501_LEN_P_1

PATIENT
  Age: 69 Year
  Sex: Female

DRUGS (11)
  1. LENVIMA [Suspect]
     Active Substance: LENVATINIB
     Indication: Papillary thyroid cancer
     Route: 048
     Dates: start: 201611
  2. LENVIMA [Suspect]
     Active Substance: LENVATINIB
     Route: 048
     Dates: start: 201701, end: 20180402
  3. LENVIMA [Suspect]
     Active Substance: LENVATINIB
     Dosage: DOSE AND FREQUENCY UNKNOWN
     Route: 048
     Dates: start: 20181128
  4. LENVIMA [Suspect]
     Active Substance: LENVATINIB
     Dosage: AT THE DOSE OF 14 MG/DAY IN A CYCLE OF 3 WEEKS ON/1 WEEK OFF AND ON A SCHEDULE OF 5-DAY ORAL ADMINIS
     Route: 048
     Dates: end: 201907
  5. LENVIMA [Suspect]
     Active Substance: LENVATINIB
     Route: 048
     Dates: start: 20191215
  6. LENVIMA [Suspect]
     Active Substance: LENVATINIB
     Dosage: DOSE AND FREQUENCY UNKNOWN (REDUCED DOSE)
     Route: 048
  7. LENVIMA [Suspect]
     Active Substance: LENVATINIB
     Route: 048
     Dates: start: 20210802, end: 20210823
  8. LENVIMA [Suspect]
     Active Substance: LENVATINIB
     Dosage: DOSE UNKNOWN ON A 2 WEEKS-ON/1 WEEK-OFF SCHEDULE (DOSE UNKNOWN)
     Route: 048
     Dates: start: 20210913, end: 20211004
  9. LENVIMA [Suspect]
     Active Substance: LENVATINIB
     Dosage: ON A 4 DAYS-ON/3 DAYS-OFF SCHEDULE
     Route: 048
     Dates: start: 20211101, end: 20211206
  10. LENVIMA [Suspect]
     Active Substance: LENVATINIB
     Dosage: ON A 5 DAYS-ON/2 DAYS-OFF SCHEDULE
     Route: 048
     Dates: start: 20211207, end: 20211227
  11. LENVIMA [Suspect]
     Active Substance: LENVATINIB
     Route: 048
     Dates: start: 20220128

REACTIONS (6)
  - Death [Fatal]
  - Thrombotic cerebral infarction [Recovering/Resolving]
  - Renal impairment [Unknown]
  - Decreased appetite [Unknown]
  - Hypercalcaemia [Unknown]
  - Back pain [Unknown]

NARRATIVE: CASE EVENT DATE: 20190101
